FAERS Safety Report 13402369 (Version 4)
Quarter: 2017Q4

REPORT INFORMATION
  Report Type: Report from Study
  Country: US (occurrence: US)
  Receive Date: 20170404
  Receipt Date: 20171018
  Transmission Date: 20180320
  Serious: Yes (Hospitalization)
  Sender: FDA-Public Use
  Company Number: US-PFIZER INC-2017097105

PATIENT
  Age: 14 Year
  Sex: Female
  Weight: 46.5 kg

DRUGS (17)
  1. CYCLOPHOSPHAMIDE. [Suspect]
     Active Substance: CYCLOPHOSPHAMIDE
     Indication: ACUTE LYMPHOCYTIC LEUKAEMIA
     Dosage: 1440 MG, ONCE
     Route: 042
     Dates: start: 20170116
  2. DOCUSATE SODIUM + SENNA [Concomitant]
     Active Substance: DOCUSATE SODIUM\SENNOSIDE A\SENNOSIDE B
     Dosage: [DOCUSATE SODIUM 50 MG]/[SENNOSIDE A+B 8.6 MG]
  3. METHOTREXATE SODIUM. [Suspect]
     Active Substance: METHOTREXATE SODIUM
     Indication: ACUTE LYMPHOCYTIC LEUKAEMIA
     Dosage: 15 MG ONCE ON 16JAN2017, 23JAN2017, 30JAN2017 AND 06FEB2017
     Route: 037
     Dates: start: 20170116
  4. INCB018424 [Suspect]
     Active Substance: RUXOLITINIB
     Indication: ACUTE LYMPHOCYTIC LEUKAEMIA
     Dosage: 40 MG, BID
     Route: 048
     Dates: start: 20170116
  5. CHOLECALCIFEROL [Concomitant]
     Active Substance: CHOLECALCIFEROL
  6. ZOFRAN [Concomitant]
     Active Substance: ONDANSETRON HYDROCHLORIDE
  7. EMLA [Concomitant]
     Active Substance: LIDOCAINE\PRILOCAINE
  8. MIRALAX [Concomitant]
     Active Substance: POLYETHYLENE GLYCOL 3350
  9. HEPARIN FLUSH [Concomitant]
     Active Substance: HEPARIN SODIUM
  10. CYTARABINE. [Suspect]
     Active Substance: CYTARABINE
     Indication: ACUTE LYMPHOCYTIC LEUKAEMIA
     Dosage: (UNITS: MG/M2) 110 MG, ONCE A DAY
     Route: 042
     Dates: start: 20170116
  11. MORPHINE [Concomitant]
     Active Substance: MORPHINE
  12. VANCOMYCIN /00314402/ [Concomitant]
     Active Substance: VANCOMYCIN
  13. PEGASPARGASE [Suspect]
     Active Substance: PEGASPARGASE
     Indication: ACUTE LYMPHOCYTIC LEUKAEMIA
     Dosage: (UNITS: IU/M2) 3675 UNITS, ONCE
     Route: 042
     Dates: start: 20170130, end: 20170130
  14. BACTRIM [Concomitant]
     Active Substance: SULFAMETHOXAZOLE\TRIMETHOPRIM
     Dosage: UNK
     Dates: start: 20161210
  15. MERCAPTOPURINE. [Suspect]
     Active Substance: MERCAPTOPURINE
     Indication: ACUTE LYMPHOCYTIC LEUKAEMIA
     Dosage: 50 MG (2 TABLETS ON FRI-SUN, 1.5 TABS ON MON-THURS)
     Route: 048
     Dates: start: 20170116
  16. BIOTENE /03475601/ [Concomitant]
  17. VINCRISTINE SULFATE. [Suspect]
     Active Substance: VINCRISTINE SULFATE
     Indication: ACUTE LYMPHOCYTIC LEUKAEMIA
     Dosage: 2 MG ONCE ON 30JAN2017, 06FEB2017, 27FEB2017, 06MAR2017
     Route: 042
     Dates: start: 20170130

REACTIONS (3)
  - Febrile neutropenia [Recovered/Resolved]
  - Pyrexia [Recovered/Resolved]
  - Neutrophil count decreased [Recovered/Resolved]

NARRATIVE: CASE EVENT DATE: 20170128
